FAERS Safety Report 4868812-8 (Version None)
Quarter: 2005Q4

REPORT INFORMATION
  Report Type: 
  Country: None (occurrence: None)
  Receive Date: 20051223
  Receipt Date: 20051215
  Transmission Date: 20060501
  Serious: Yes (Life-Threatening, Disabling)
  Sender: FDA-Public Use
  Company Number: 218818

PATIENT
  Age: 61 Year
  Sex: Female

DRUGS (6)
  1. RITUXAN [Suspect]
     Indication: LYMPHOMA
     Dosage: 500 MG, INTRAVENOUS
     Route: 042
     Dates: start: 20050208, end: 20050613
  2. DOXORUBICIN HYDROCHLORIDE [Suspect]
     Indication: LYMPHOMA
     Dosage: 64 MG, INTRAVENOUS
     Route: 042
     Dates: start: 20050210, end: 20050615
  3. CYCLOPHOSPHAMIDE [Suspect]
     Indication: LYMPHOMA
     Dosage: 960 MG, INTRAVENOUS
     Route: 042
     Dates: start: 20050210, end: 20050615
  4. ONCOVIN [Suspect]
     Indication: LYMPHOMA
     Dosage: SEE IMAGE
     Route: 042
     Dates: start: 20050210, end: 20050615
  5. PREDNISOLONE [Suspect]
     Indication: LYMPHOMA
     Dosage: 100 MG, PRN, ORAL
     Route: 048
     Dates: start: 20050210, end: 20050615
  6. SUPPOSITORY NOS (GENERIC COMPONENT (S) NOT KNOWN) [Concomitant]

REACTIONS (13)
  - ASCITES [None]
  - BLOOD PRESSURE SYSTOLIC DECREASED [None]
  - DRUG INEFFECTIVE [None]
  - ENTEROCOCCAL INFECTION [None]
  - ESCHERICHIA INFECTION [None]
  - HEPATITIS [None]
  - ILEUS [None]
  - INTESTINAL PERFORATION [None]
  - KLEBSIELLA INFECTION [None]
  - PERITONEAL FLUID ANALYSIS ABNORMAL [None]
  - PERITONITIS [None]
  - SEPTIC SHOCK [None]
  - WHITE BLOOD CELL COUNT DECREASED [None]
